FAERS Safety Report 4903666-2 (Version None)
Quarter: 2006Q1

REPORT INFORMATION
  Report Type: 
  Country: None (occurrence: None)
  Receive Date: 20060202
  Receipt Date: 20060120
  Transmission Date: 20060701
  Serious: Yes (Hospitalization)
  Sender: FDA-Public Use
  Company Number: 2006007946

PATIENT
  Age: 76 Year
  Sex: Female

DRUGS (6)
  1. LINDOMYCIN HYDROCHLORIDE MONOHYDRATE SOLUTION, STERILE (LINCOMYCIN HYD [Suspect]
     Indication: PHARYNGITIS
     Dosage: 1 GRAM (1 GRAM, 1 IN 1 D), INTRAVENOUS
     Route: 042
     Dates: start: 20050311, end: 20050311
  2. ACETYLCHOLINE CHLORIDE (ACETYLCHOLINE CHLORIDE) [Concomitant]
  3. CABAGIN-COWA (METHYL METHIONINE SULFONIUM CHLORIDE) : OTC DRUG (ALL OT [Concomitant]
  4. RESPLEN (EPRAZINONE HYDROCHLORIDE) (EPRAZINONE HYDROCHLORIDE) [Concomitant]
  5. CEFZON (CEFDINIR) (CEFDINIR) [Concomitant]
  6. MAROSIN (PIPETHANATE HYDROCHLORIDE/MALLOTUS JAPONICUS EXTRACT) (HERBAL [Concomitant]

REACTIONS (7)
  - ACUTE GENERALISED EXANTHEMATOUS PUSTULOSIS [None]
  - ALPHA HAEMOLYTIC STREPTOCOCCAL INFECTION [None]
  - BACTERIAL INFECTION [None]
  - CANDIDIASIS [None]
  - CULTURE THROAT POSITIVE [None]
  - PYREXIA [None]
  - RASH ERYTHEMATOUS [None]
